FAERS Safety Report 18080777 (Version 9)
Quarter: 2025Q4

REPORT INFORMATION
  Report Type: Report from Study
  Country: BR (occurrence: BR)
  Receive Date: 20200728
  Receipt Date: 20251008
  Transmission Date: 20260118
  Serious: Yes (Hospitalization, Other)
  Sender: TAKEDA
  Company Number: BR-TAKEDA-2018TUS028907

PATIENT
  Age: 61 Year
  Sex: Female

DRUGS (1)
  1. VEDOLIZUMAB [Suspect]
     Active Substance: VEDOLIZUMAB
     Indication: Colitis ulcerative
     Dosage: 300 MILLIGRAM

REACTIONS (23)
  - Appendix disorder [Unknown]
  - COVID-19 [Recovered/Resolved]
  - Escherichia urinary tract infection [Unknown]
  - Pneumonia [Recovered/Resolved]
  - Illness [Recovered/Resolved]
  - Swelling [Recovered/Resolved]
  - Decreased immune responsiveness [Unknown]
  - Product storage error [Unknown]
  - Malaise [Recovered/Resolved]
  - Abdominal pain [Recovered/Resolved]
  - Asthenia [Recovered/Resolved]
  - Gastroenteritis [Recovered/Resolved]
  - Chills [Recovered/Resolved]
  - Flatulence [Recovered/Resolved]
  - Arthralgia [Recovered/Resolved]
  - Influenza [Recovered/Resolved]
  - Memory impairment [Unknown]
  - Upper respiratory tract inflammation [Recovered/Resolved]
  - Chikungunya virus infection [Recovering/Resolving]
  - Laryngitis [Recovered/Resolved]
  - Inappropriate schedule of product administration [Not Recovered/Not Resolved]
  - Fatigue [Recovered/Resolved]
  - Sinusitis [Recovering/Resolving]

NARRATIVE: CASE EVENT DATE: 20180515
